FAERS Safety Report 4918486-2 (Version None)
Quarter: 2006Q1

REPORT INFORMATION
  Report Type: 
  Country: None (occurrence: None)
  Receive Date: 20060217
  Receipt Date: 20060217
  Transmission Date: 20060701
  Serious: Yes (Life-Threatening)
  Sender: FDA-Public Use
  Company Number: None

PATIENT
  Age: 31 Year
  Sex: Male
  Weight: 59.09 kg

DRUGS (2)
  1. IMIPENEM/CILASTATIN [Suspect]
     Indication: SEPSIS
     Dosage: 500 MG Q6H IV
     Route: 042
     Dates: start: 20051207, end: 20051208
  2. CLINDAMYCIN HCL [Concomitant]

REACTIONS (3)
  - CONVULSION [None]
  - POSTICTAL STATE [None]
  - SEPSIS [None]
